FAERS Safety Report 5751777-4 (Version None)
Quarter: 2008Q2

REPORT INFORMATION
  Report Type: 
  Country: None (occurrence: None)
  Receive Date: 20080527
  Receipt Date: 20080512
  Transmission Date: 20081010
  Serious: Yes (Hospitalization)
  Sender: FDA-Public Use
  Company Number: 2008BI012190

PATIENT
  Age: 50 Year
  Sex: Female
  Weight: 151.955 kg

DRUGS (1)
  1. AVONEX [Suspect]
     Indication: MULTIPLE SCLEROSIS
     Dosage: 30 UG;QW;IM
     Route: 030
     Dates: start: 20000301, end: 20080427

REACTIONS (7)
  - ACANTHAMOEBA INFECTION [None]
  - CELLULITIS [None]
  - DEPRESSION [None]
  - HYPERTENSION [None]
  - HYPOTENSION [None]
  - RETINAL TEAR [None]
  - VISION BLURRED [None]
